FAERS Safety Report 8078016-6 (Version None)
Quarter: 2012Q1

REPORT INFORMATION
  Report Type: 
  Country: None (occurrence: None)
  Receive Date: 20120127
  Receipt Date: 20110107
  Transmission Date: 20120608
  Serious: No
  Sender: FDA-Public Use
  Company Number: US-ABBOTT-11P-163-0695878-00

PATIENT
  Sex: Female
  Weight: 93.07 kg

DRUGS (11)
  1. HUMIRA [Suspect]
     Indication: FIBROMYALGIA
  2. HUMIRA [Suspect]
     Indication: FIBROMYALGIA
  3. DOXEPIN [Concomitant]
     Indication: HYPERSENSITIVITY
  4. AMBIEN [Concomitant]
     Indication: INSOMNIA
  5. HUMIRA [Suspect]
     Indication: ARTHRITIS
  6. SOMA [Concomitant]
     Indication: MYALGIA
  7. SAVELLA [Concomitant]
     Indication: FIBROMYALGIA
  8. HUMIRA [Suspect]
     Indication: ARTHRITIS
  9. METRONIDAZOLE [Concomitant]
     Indication: GASTRIC DISORDER
  10. ACTOPLUS MET [Concomitant]
     Indication: DIABETES MELLITUS
  11. LYRICA [Concomitant]
     Indication: FIBROMYALGIA

REACTIONS (3)
  - ARTHRALGIA [None]
  - INJECTION SITE PAIN [None]
  - DRUG INEFFECTIVE [None]
